FAERS Safety Report 25430021 (Version 2)
Quarter: 2025Q3

REPORT INFORMATION
  Report Type: Spontaneous
  Country: US (occurrence: US)
  Receive Date: 20250612
  Receipt Date: 20250710
  Transmission Date: 20251020
  Serious: Yes (Hospitalization)
  Sender: RECKITT BENCKISER
  Company Number: US-INDIVIOR US-INDV-163784-2025

PATIENT

DRUGS (3)
  1. SUBLOCADE [Suspect]
     Active Substance: BUPRENORPHINE
     Indication: Drug use disorder
     Dosage: UNK, QMO
     Route: 058
     Dates: start: 202410
  2. SUBLOCADE [Suspect]
     Active Substance: BUPRENORPHINE
  3. SUBLOCADE [Suspect]
     Active Substance: BUPRENORPHINE
     Indication: Drug use disorder
     Dosage: 100 MILLIGRAM, QMO
     Route: 058
     Dates: start: 20250328

REACTIONS (7)
  - Palmoplantar keratoderma [Not Recovered/Not Resolved]
  - Cellulitis [Unknown]
  - Dysuria [Not Recovered/Not Resolved]
  - Constipation [Unknown]
  - Abdominal pain [Not Recovered/Not Resolved]
  - Injection site induration [Not Recovered/Not Resolved]
  - Injection site pain [Not Recovered/Not Resolved]

NARRATIVE: CASE EVENT DATE: 20240101
